FAERS Safety Report 18023997 (Version 1)
Quarter: 2020Q3

REPORT INFORMATION
  Report Type: Spontaneous
  Country: FR (occurrence: FR)
  Receive Date: 20200715
  Receipt Date: 20200715
  Transmission Date: 20201103
  Serious: Yes (Other)
  Sender: FDA-Public Use
  Company Number: FR-BIOVITRUM-2020FR3622

PATIENT
  Age: 43 Year
  Sex: Female

DRUGS (9)
  1. KINERET [Suspect]
     Active Substance: ANAKINRA
     Indication: PSORIATIC ARTHROPATHY
     Route: 058
     Dates: start: 2013
  2. HUMIRA [Suspect]
     Active Substance: ADALIMUMAB
     Indication: PSORIATIC ARTHROPATHY
     Route: 058
     Dates: start: 20200201, end: 20200403
  3. ESTRADIOL. [Concomitant]
     Active Substance: ESTRADIOL
     Route: 048
  4. IBUPROFENE [Concomitant]
     Active Substance: IBUPROFEN
     Route: 048
     Dates: start: 20200420
  5. RACECADOTRIL [Concomitant]
     Active Substance: RACECADOTRIL
     Route: 048
  6. ENBREL [Suspect]
     Active Substance: ETANERCEPT
     Indication: PSORIATIC ARTHROPATHY
     Route: 058
     Dates: end: 201902
  7. SIMPONI [Suspect]
     Active Substance: GOLIMUMAB
     Indication: PSORIATIC ARTHROPATHY
     Route: 058
     Dates: start: 201902, end: 202002
  8. CHLORMADINONE (ACETATE DE) [Concomitant]
     Active Substance: CHLORMADINONE ACETATE
     Route: 048
  9. ZELITREX 500 MG, COMPRIME ENROBE [Concomitant]
     Active Substance: VALACYCLOVIR HYDROCHLORIDE
     Route: 048

REACTIONS (1)
  - Hodgkin^s disease [Not Recovered/Not Resolved]

NARRATIVE: CASE EVENT DATE: 20200429
